FAERS Safety Report 7476702-X (Version None)
Quarter: 2011Q2

REPORT INFORMATION
  Report Type: 
  Country: None (occurrence: None)
  Receive Date: 20110510
  Receipt Date: 20110510
  Transmission Date: 20111010
  Serious: Yes (Death)
  Sender: FDA-Public Use
  Company Number: None

PATIENT
  Age: 66 Year
  Sex: Female

DRUGS (2)
  1. DABIGATRAN 75MG BID [Suspect]
  2. PRADAXA [Suspect]
     Indication: ATRIAL FIBRILLATION

REACTIONS (14)
  - THIRST [None]
  - RASH VESICULAR [None]
  - ELECTROCARDIOGRAM T WAVE PEAKED [None]
  - RENAL FAILURE [None]
  - ASTHENIA [None]
  - SHOCK [None]
  - PROTHROMBIN TIME PROLONGED [None]
  - CONFUSIONAL STATE [None]
  - DYSPNOEA [None]
  - OEDEMA [None]
  - HAEMATEMESIS [None]
  - VENTRICULAR FIBRILLATION [None]
  - MELAENA [None]
  - VENTRICULAR TACHYCARDIA [None]
